FAERS Safety Report 9202015 (Version 1)
Quarter: 2013Q2

REPORT INFORMATION
  Report Type: Report from Study
  Country: FR (occurrence: FR)
  Receive Date: 20130401
  Receipt Date: 20130401
  Transmission Date: 20140414
  Serious: Yes (Hospitalization)
  Sender: FDA-Public Use
  Company Number: PHHO2013FR004574

PATIENT
  Sex: 0

DRUGS (6)
  1. NEORAL [Suspect]
     Indication: HEART TRANSPLANT
     Dosage: 140 MG, QD
     Route: 048
     Dates: start: 20080413
  2. EVEROLIMUS [Suspect]
     Indication: HEART TRANSPLANT
     Dosage: 2 MG, QD
     Route: 048
     Dates: start: 20100331
  3. ATENOLOL [Concomitant]
  4. TAHOR [Concomitant]
  5. ATACAND [Concomitant]
  6. AMLOR [Concomitant]

REACTIONS (1)
  - Haemorrhagic stroke [Recovered/Resolved with Sequelae]
